FAERS Safety Report 19679798 (Version 2)
Quarter: 2021Q3

REPORT INFORMATION
  Report Type: Report from Study
  Country: None (occurrence: US)
  Receive Date: 20210809
  Receipt Date: 20210812
  Transmission Date: 20211014
  Serious: Yes (Other)
  Sender: FDA-Public Use
  Company Number: US-ABBVIE-21K-163-4026779-00

PATIENT
  Sex: Male
  Weight: 108.96 kg

DRUGS (4)
  1. COVID?19 VACCINE [Concomitant]
     Indication: COVID-19 IMMUNISATION
     Route: 030
     Dates: start: 20210120, end: 20210120
  2. COVID?19 VACCINE [Concomitant]
     Route: 030
     Dates: start: 20210210, end: 20210210
  3. IMBRUVICA [Suspect]
     Active Substance: IBRUTINIB
     Indication: CHRONIC LYMPHOCYTIC LEUKAEMIA
     Route: 048
     Dates: start: 20210301
  4. ATORVASTATIN [Concomitant]
     Active Substance: ATORVASTATIN
     Indication: BLOOD CHOLESTEROL INCREASED

REACTIONS (8)
  - Blood creatinine increased [Not Recovered/Not Resolved]
  - Joint swelling [Recovering/Resolving]
  - Fatigue [Not Recovered/Not Resolved]
  - Blood test abnormal [Unknown]
  - Atrial flutter [Recovered/Resolved]
  - Peripheral swelling [Recovering/Resolving]
  - Asthenia [Not Recovered/Not Resolved]
  - Glomerular filtration rate increased [Unknown]

NARRATIVE: CASE EVENT DATE: 2021
